FAERS Safety Report 4924893-4 (Version None)
Quarter: 2006Q1

REPORT INFORMATION
  Report Type: 
  Country: None (occurrence: None)
  Receive Date: 20060227
  Receipt Date: 20050113
  Transmission Date: 20060701
  Serious: Yes (Hospitalization, Other)
  Sender: FDA-Public Use
  Company Number: US-MERCK-0501USA01769

PATIENT
  Age: 62 Year
  Sex: Male
  Weight: 82 kg

DRUGS (2)
  1. VIOXX [Suspect]
     Indication: OSTEOARTHRITIS
     Route: 048
     Dates: start: 20010817, end: 20041016
  2. VIOXX [Suspect]
     Route: 048
     Dates: start: 20010817, end: 20041016

REACTIONS (6)
  - ARTERIOSCLEROSIS [None]
  - BLOOD SODIUM DECREASED [None]
  - CARDIOVASCULAR DISORDER [None]
  - CAROTID ARTERY DISEASE [None]
  - CEREBROVASCULAR ACCIDENT [None]
  - FALL [None]
